FAERS Safety Report 6673799-1 (Version None)
Quarter: 2010Q2

REPORT INFORMATION
  Report Type: 
  Country: None (occurrence: None)
  Receive Date: 20100407
  Receipt Date: 20100326
  Transmission Date: 20101027
  Serious: Yes (Hospitalization)
  Sender: FDA-Public Use
  Company Number: 2010039666

PATIENT
  Age: 71 Year

DRUGS (15)
  1. FRAGMIN [Suspect]
     Indication: THROMBOSIS PROPHYLAXIS
     Dosage: 7500 IU, 2X/DAY, SUBCUTANEOUS; 10000 IU, SUBCUTANEOUS
     Route: 058
     Dates: start: 20091013, end: 20091013
  2. FRAGMIN [Suspect]
     Indication: THROMBOSIS PROPHYLAXIS
     Dosage: 7500 IU, 2X/DAY, SUBCUTANEOUS; 10000 IU, SUBCUTANEOUS
     Route: 058
     Dates: start: 20091013, end: 20091019
  3. SYMBICORT [Concomitant]
  4. GANATON (ITOPRIDE HYDROCHLORIDE) [Concomitant]
  5. PREDNISON (PREDNISONE) [Concomitant]
  6. AMINOPHYLLINE [Concomitant]
  7. OMEPRAZOLE [Concomitant]
  8. ENAP (ENALAPRIL) [Concomitant]
  9. VASILIP (SIMVASTATIN) [Concomitant]
  10. PLAVIX [Concomitant]
  11. ISOPTIN [Concomitant]
  12. CORDARONE [Concomitant]
  13. DIGOXIN [Concomitant]
  14. VENTOLIN [Concomitant]
  15. ANOPYRIN (ACETYLSALICYLIC ACID) [Concomitant]

REACTIONS (4)
  - ANAEMIA [None]
  - HYPOTENSION [None]
  - OLIGURIA [None]
  - SUBCUTANEOUS HAEMATOMA [None]
